FAERS Safety Report 6823177-7 (Version None)
Quarter: 2010Q3

REPORT INFORMATION
  Report Type: 
  Country: None (occurrence: None)
  Receive Date: 20100702
  Receipt Date: 20100623
  Transmission Date: 20110219
  Serious: Yes (Hospitalization, Other)
  Sender: FDA-Public Use
  Company Number: 2010SP035514

PATIENT
  Sex: Female

DRUGS (1)
  1. MIRALAX [Suspect]
     Indication: BOWEL PREPARATION
     Dosage: ; PO
     Route: 048
     Dates: start: 20090910

REACTIONS (4)
  - CARDIAC DISORDER [None]
  - EMOTIONAL DISTRESS [None]
  - PAIN [None]
  - UNEVALUABLE EVENT [None]
